FAERS Safety Report 15531619 (Version 1)
Quarter: 2018Q4

REPORT INFORMATION
  Report Type: Spontaneous
  Country: US (occurrence: US)
  Receive Date: 20181019
  Receipt Date: 20181019
  Transmission Date: 20190205
  Serious: Yes (Other)
  Sender: FDA-Public Use
  Company Number: US-CURIUM PHARMACEUTICALS-200800320

PATIENT
  Age: 49 Year
  Sex: Female

DRUGS (7)
  1. SODIUM IODIDE I 131 [Suspect]
     Active Substance: SODIUM IODIDE I-131
     Indication: PAPILLARY THYROID CANCER
     Route: 065
     Dates: start: 200608, end: 200608
  2. THYROGEN [Concomitant]
     Active Substance: THYROTROPIN ALFA
     Indication: PREMEDICATION
     Route: 030
     Dates: start: 200608, end: 200608
  3. THYROGEN [Concomitant]
     Active Substance: THYROTROPIN ALFA
     Indication: PREMEDICATION
     Route: 030
     Dates: start: 200703, end: 200703
  4. SODIUM IODIDE I 131 [Suspect]
     Active Substance: SODIUM IODIDE I-131
     Indication: PAPILLARY THYROID CANCER
     Route: 065
     Dates: start: 200703, end: 200703
  5. SODIUM IODIDE I 131 [Suspect]
     Active Substance: SODIUM IODIDE I-131
     Indication: PAPILLARY THYROID CANCER
     Route: 065
     Dates: start: 200101, end: 200101
  6. RADIATION THERAPY [Concomitant]
     Active Substance: RADIATION THERAPY
     Indication: LYMPHADENOPATHY
     Dosage: 3000 RADS OVER TWO WEEKS
     Dates: start: 200611, end: 200611
  7. ZOLEDRONIC ACID [Concomitant]
     Active Substance: ZOLEDRONIC ACID
     Indication: BONE PAIN
     Dosage: 4 MG, EVERY 4-6 WEEKS
     Route: 042
     Dates: start: 200611

REACTIONS (1)
  - Endocrine ophthalmopathy [Unknown]
